FAERS Safety Report 15246792 (Version 1)
Quarter: 2018Q3

REPORT INFORMATION
  Report Type: Spontaneous
  Country: IT (occurrence: IT)
  Receive Date: 20180806
  Receipt Date: 20180806
  Transmission Date: 20181010
  Serious: Yes (Life-Threatening, Hospitalization)
  Sender: FDA-Public Use
  Company Number: PHHY2018IT059522

PATIENT
  Age: 78 Year
  Sex: Female

DRUGS (1)
  1. TELMISARTAN+HYDROCHLOROTHIAZIDE [Suspect]
     Active Substance: HYDROCHLOROTHIAZIDE\TELMISARTAN
     Indication: PRODUCT USED FOR UNKNOWN INDICATION
     Dosage: 40 MG TELMISARTAN/12.5 MG HYDROCHLOROTHIAZIDE PILL
     Route: 065

REACTIONS (10)
  - Pulmonary oedema [Recovered/Resolved]
  - Rales [Recovered/Resolved]
  - Hypotension [Recovered/Resolved]
  - Cyanosis [Recovered/Resolved]
  - Sinus tachycardia [Recovered/Resolved]
  - Dyspnoea [Recovered/Resolved]
  - Accidental exposure to product [Unknown]
  - Interstitial lung disease [Recovered/Resolved]
  - Anaphylactic shock [Recovered/Resolved]
  - Respiratory acidosis [Recovered/Resolved]
